FAERS Safety Report 6857681-2 (Version None)
Quarter: 2010Q3

REPORT INFORMATION
  Report Type: 
  Country: None (occurrence: None)
  Receive Date: 20100719
  Receipt Date: 20100710
  Transmission Date: 20110219
  Serious: Yes (Other)
  Sender: FDA-Public Use
  Company Number: AU-WATSON-2010-09224

PATIENT
  Age: 35 Year
  Sex: Male

DRUGS (1)
  1. IBUPROFEN TABLETS [Suspect]
     Indication: PRODUCT USED FOR UNKNOWN INDICATION
     Dosage: UNK

REACTIONS (2)
  - ATRIAL FIBRILLATION [None]
  - OVERDOSE [None]
